FAERS Safety Report 4689637-2 (Version None)
Quarter: 2005Q2

REPORT INFORMATION
  Report Type: 
  Country: None (occurrence: None)
  Receive Date: 20050607
  Receipt Date: 20040824
  Transmission Date: 20051028
  Serious: Yes (Hospitalization)
  Sender: FDA-Public Use
  Company Number: 2004_000067

PATIENT
  Sex: Female

DRUGS (1)
  1. DEPOCYT [Suspect]
     Indication: LYMPHOMA
     Dosage: INTRATHECAL
     Route: 037
     Dates: start: 20040301, end: 20040601

REACTIONS (3)
  - FAECAL INCONTINENCE [None]
  - HYPOAESTHESIA [None]
  - URINARY INCONTINENCE [None]
